FAERS Safety Report 9248297 (Version 3)
Quarter: 2014Q1

REPORT INFORMATION
  Report Type: Spontaneous
  Country: US (occurrence: US)
  Receive Date: 20130423
  Receipt Date: 20140207
  Transmission Date: 20141002
  Serious: Yes (Hospitalization, Other)
  Sender: FDA-Public Use
  Company Number: US-ASTRAZENECA-2013SE27502

PATIENT
  Age: 51 Year
  Sex: Male
  Weight: 111.1 kg

DRUGS (14)
  1. NEXIUM [Suspect]
     Indication: GASTROOESOPHAGEAL REFLUX DISEASE
     Route: 048
     Dates: start: 2005
  2. NEXIUM [Suspect]
     Indication: GASTROOESOPHAGEAL REFLUX DISEASE
     Route: 048
     Dates: start: 20050128
  3. PROTONIX [Concomitant]
     Indication: GASTROOESOPHAGEAL REFLUX DISEASE
     Dates: start: 2006
  4. RANITIDINE [Concomitant]
     Dates: start: 2006
  5. METFORMIN [Concomitant]
     Dates: start: 20050128
  6. CLONAZEPAM [Concomitant]
     Dates: start: 20050128
  7. GABAPENTIN [Concomitant]
     Dates: start: 20050525
  8. LEVAQUIN [Concomitant]
     Dates: start: 20051028
  9. GLIPIZIDE [Concomitant]
  10. HYDROXYZINE HYDROCHLORIDE [Concomitant]
  11. ZETIA [Concomitant]
  12. AVINZA [Concomitant]
  13. SIMVASTATIN [Concomitant]
  14. DULCOLAX [Concomitant]

REACTIONS (9)
  - Upper limb fracture [Unknown]
  - Lower limb fracture [Unknown]
  - Gangrene [Unknown]
  - Fall [Unknown]
  - Cerebrovascular accident [Unknown]
  - Osteoporosis [Unknown]
  - Bone disorder [Unknown]
  - Wrist fracture [Unknown]
  - Radius fracture [Unknown]
